FAERS Safety Report 15202459 (Version 1)
Quarter: 2018Q3

REPORT INFORMATION
  Report Type: Spontaneous
  Country: US (occurrence: US)
  Receive Date: 20180726
  Receipt Date: 20180726
  Transmission Date: 20181010
  Serious: Yes (Other)
  Sender: FDA-Public Use
  Company Number: US-SA-2018SA058374

PATIENT
  Age: 39 Year
  Sex: Female
  Weight: 90.26 kg

DRUGS (6)
  1. TAXOTERE [Suspect]
     Active Substance: DOCETAXEL
     Indication: BREAST CANCER
     Dosage: 200 DF,Q3W
     Route: 051
     Dates: start: 20080924, end: 20080924
  2. DOXORUBICIN [Concomitant]
     Active Substance: DOXORUBICIN
  3. TAXOTERE [Suspect]
     Active Substance: DOCETAXEL
     Dosage: 200 DF,Q3W
     Route: 051
     Dates: start: 20081125, end: 20081125
  4. XARELTO [Concomitant]
     Active Substance: RIVAROXABAN
  5. AMLODIPINE [Concomitant]
     Active Substance: AMLODIPINE BESYLATE
  6. NEOSAR [Concomitant]
     Active Substance: CYCLOPHOSPHAMIDE

REACTIONS (2)
  - Psychological trauma [Unknown]
  - Alopecia [Recovering/Resolving]

NARRATIVE: CASE EVENT DATE: 20090325
